FAERS Safety Report 6267725-7 (Version None)
Quarter: 2009Q3

REPORT INFORMATION
  Report Type: 
  Country: None (occurrence: None)
  Receive Date: 20090714
  Receipt Date: 20090707
  Transmission Date: 20100115
  Serious: Yes (Hospitalization)
  Sender: FDA-Public Use
  Company Number: PHHO2008DE11723

PATIENT
  Sex: Male
  Weight: 78.5 kg

DRUGS (8)
  1. RAD 666 RAD+TAB [Suspect]
     Indication: RENAL TRANSPLANT
     Dosage: 2 MG, QD
     Route: 048
     Dates: start: 20090114
  2. CYCLOSPORINE [Suspect]
     Indication: RENAL TRANSPLANT
     Dosage: 220 MG
     Route: 048
     Dates: start: 20080808
  3. CYCLOSPORINE [Suspect]
     Dosage: 100 MG/DAY
     Route: 048
     Dates: start: 20090528, end: 20090706
  4. MYFORTIC [Concomitant]
     Dosage: UNK
     Dates: start: 20080808
  5. CORTICOSTEROID NOS [Concomitant]
  6. SIMULECT [Concomitant]
     Dosage: UNK
     Dates: start: 20080808, end: 20080812
  7. DECORTIN [Concomitant]
     Dosage: 25 MG, UNK
     Route: 048
     Dates: start: 20081015
  8. CELLCEPT [Concomitant]
     Indication: RENAL TRANSPLANT
     Dosage: 250 MG, UNK
     Route: 048
     Dates: start: 20090707

REACTIONS (3)
  - BLOOD CREATININE INCREASED [None]
  - NEPHROPATHY TOXIC [None]
  - THERAPEUTIC AGENT TOXICITY [None]
